FAERS Safety Report 23048358 (Version 1)
Quarter: 2023Q4

REPORT INFORMATION
  Report Type: Spontaneous
  Country: US (occurrence: US)
  Receive Date: 20231010
  Receipt Date: 20231010
  Transmission Date: 20240110
  Serious: Yes (Other)
  Sender: FDA-Public Use
  Company Number: US-SANDOZ-SDZ2023US038949

PATIENT
  Age: 55 Year
  Sex: Male

DRUGS (6)
  1. DEXMEDETOMIDINE [Suspect]
     Active Substance: DEXMEDETOMIDINE
     Indication: Postoperative care
     Dosage: 0.5 UG/KG, QH
     Route: 041
  2. CEFAZOLIN [Concomitant]
     Active Substance: CEFAZOLIN
     Indication: Postoperative care
     Route: 065
  3. EPINEPHRINE [Concomitant]
     Active Substance: EPINEPHRINE
     Indication: Mean arterial pressure
     Dosage: UNK
     Route: 065
  4. HEPARIN [Concomitant]
     Active Substance: HEPARIN SODIUM
     Indication: Postoperative care
     Dosage: 24000 U
     Route: 065
  5. NOREPINEPHRINE [Concomitant]
     Active Substance: NOREPINEPHRINE
     Indication: Mean arterial pressure
     Route: 065
  6. VANCOMYCIN [Concomitant]
     Active Substance: VANCOMYCIN
     Indication: Postoperative care
     Dosage: UNK
     Route: 065

REACTIONS (1)
  - Diabetes insipidus [Recovered/Resolved]
